FAERS Safety Report 7865884-3 (Version None)
Quarter: 2011Q4

REPORT INFORMATION
  Report Type: 
  Country: None (occurrence: None)
  Receive Date: 20111028
  Receipt Date: 20110315
  Transmission Date: 20120403
  Serious: No
  Sender: FDA-Public Use
  Company Number: US-GLAXOSMITHKLINE-A0918306A

PATIENT
  Age: 71 Year
  Sex: Male

DRUGS (10)
  1. NIASPAN [Concomitant]
  2. FISH OIL [Concomitant]
  3. COQ10 [Concomitant]
  4. ADVAIR DISKUS 100/50 [Suspect]
     Indication: CHRONIC OBSTRUCTIVE PULMONARY DISEASE
     Dosage: 2PUFF TWICE PER DAY
     Route: 055
     Dates: start: 20100501
  5. MULTI-VITAMIN [Concomitant]
  6. VITAMIN B-12 [Concomitant]
  7. LISINOPRIL [Concomitant]
  8. FINASTERIDE [Concomitant]
  9. ASPIRIN [Concomitant]
  10. LOVASTATIN [Concomitant]

REACTIONS (1)
  - DENTAL CARIES [None]
